FAERS Safety Report 4959099-6 (Version None)
Quarter: 2006Q1

REPORT INFORMATION
  Report Type: 
  Country: None (occurrence: None)
  Receive Date: 20060331
  Receipt Date: 20060321
  Transmission Date: 20060701
  Serious: Yes (Other)
  Sender: FDA-Public Use
  Company Number: US-JNJFOC-20041100914

PATIENT
  Sex: Female

DRUGS (4)
  1. REMICADE [Suspect]
     Indication: CROHN'S DISEASE
     Route: 042
  2. STEROIDS [Concomitant]
  3. PENTASA [Concomitant]
  4. ANTIBIOTICS [Concomitant]

REACTIONS (1)
  - TUBERCULOSIS [None]
